FAERS Safety Report 9149970 (Version 1)
Quarter: 2013Q1

REPORT INFORMATION
  Report Type: Spontaneous
  Country: US (occurrence: US)
  Receive Date: 20130308
  Receipt Date: 20130308
  Transmission Date: 20140127
  Serious: No
  Sender: FDA-Public Use
  Company Number: US-ASTRAZENECA-2013SE11345

PATIENT
  Age: 70 Year
  Sex: Female
  Weight: 68 kg

DRUGS (3)
  1. CRESTOR [Suspect]
     Route: 048
     Dates: start: 20130213
  2. RETINA-A [Suspect]
     Indication: PRECANCEROUS SKIN LESION
     Route: 065
  3. ENALAPRIL [Concomitant]
     Indication: BLOOD PRESSURE ABNORMAL

REACTIONS (2)
  - Rash pruritic [Not Recovered/Not Resolved]
  - Off label use [Unknown]
